FAERS Safety Report 5941435-5 (Version None)
Quarter: 2008Q4

REPORT INFORMATION
  Report Type: 
  Country: None (occurrence: None)
  Receive Date: 20081103
  Receipt Date: 20081103
  Transmission Date: 20090506
  Serious: No
  Sender: FDA-Public Use
  Company Number: None

PATIENT
  Age: 25 Year
  Sex: Female
  Weight: 43.0917 kg

DRUGS (1)
  1. PAROXETINE HCL [Suspect]
     Dosage: 2.4ML - CURRENT  ONCE PER DAY PO
     Route: 048
     Dates: start: 20080101, end: 20081102

REACTIONS (7)
  - ACTIVITIES OF DAILY LIVING IMPAIRED [None]
  - DIZZINESS [None]
  - HEADACHE [None]
  - NAUSEA [None]
  - NIGHT SWEATS [None]
  - NIGHTMARE [None]
  - WITHDRAWAL SYNDROME [None]
